FAERS Safety Report 15616608 (Version 1)
Quarter: 2018Q4

REPORT INFORMATION
  Report Type: Report from Study
  Country: IL (occurrence: IL)
  Receive Date: 20181114
  Receipt Date: 20181114
  Transmission Date: 20190205
  Serious: Yes (Death, Hospitalization)
  Sender: FDA-Public Use
  Company Number: PHHY2016IL046366

PATIENT
  Age: 41 Year
  Sex: Male

DRUGS (4)
  1. SANDOSTATIN LAR DEPOT [Suspect]
     Active Substance: OCTREOTIDE ACETATE
     Indication: ACROMEGALY
     Dosage: 30 MG, QMO (1Q4W)
     Route: 030
     Dates: start: 20140831
  2. SANDOSTATIN LAR DEPOT [Suspect]
     Active Substance: OCTREOTIDE ACETATE
     Dosage: 30 MG, Q3W
     Route: 030
  3. SANDOSTATIN LAR DEPOT [Suspect]
     Active Substance: OCTREOTIDE ACETATE
     Dosage: UNK
     Route: 065
     Dates: start: 20180424
  4. SANDOSTATIN LAR DEPOT [Suspect]
     Active Substance: OCTREOTIDE ACETATE
     Dosage: 30 MG, Q3W
     Route: 030
     Dates: start: 20180518

REACTIONS (5)
  - Eye pain [Not Recovered/Not Resolved]
  - Inappropriate schedule of product administration [Unknown]
  - Death [Fatal]
  - Pituitary tumour benign [Unknown]
  - Fatigue [Not Recovered/Not Resolved]

NARRATIVE: CASE EVENT DATE: 20181017
